FAERS Safety Report 9718465 (Version 1)
Quarter: 2013Q4

REPORT INFORMATION
  Report Type: Not Available
  Country: US (occurrence: US)
  Receive Date: 20131125
  Receipt Date: 20131125
  Transmission Date: 20140711
  Serious: No
  Sender: FDA-Public Use
  Company Number: US-VIVUS-2013V1000630

PATIENT
  Age: 59 Year
  Sex: Female
  Weight: 70.37 kg

DRUGS (5)
  1. QSYMIA 3.75MG/23MG [Suspect]
     Indication: WEIGHT DECREASED
     Route: 048
     Dates: start: 20130322, end: 20130404
  2. QSYMIA 7.5MG/46MG [Suspect]
     Indication: WEIGHT DECREASED
     Route: 048
     Dates: start: 20130405, end: 20130716
  3. QSYMIA 7.5MG/46MG [Suspect]
     Route: 048
     Dates: start: 20130828
  4. OVER THE CONTER ALLERGY DROPS [Concomitant]
     Indication: HYPERSENSITIVITY
  5. CONCOMITANT MEDICATIONS [Concomitant]
     Indication: PRODUCT USED FOR UNKNOWN INDICATION

REACTIONS (1)
  - Vision blurred [Recovered/Resolved]
